FAERS Safety Report 9110695 (Version 1)
Quarter: 2013Q1

REPORT INFORMATION
  Report Type: Spontaneous
  Country: US (occurrence: US)
  Receive Date: 20130219
  Receipt Date: 20130219
  Transmission Date: 20140127
  Serious: No
  Sender: FDA-Public Use
  Company Number: US-BRISTOL-MYERS SQUIBB COMPANY-16858813

PATIENT
  Age: 54 Year
  Sex: Female
  Weight: 88.43 kg

DRUGS (8)
  1. ORENCIA [Suspect]
     Indication: RHEUMATOID ARTHRITIS
     Dosage: 125MG/ML PREFILLED SYRINGE(4PACK)?LAST SCRIPT ON 14-AUG-2012
     Route: 058
     Dates: start: 201112
  2. XANAX [Concomitant]
     Dosage: TAB
  3. LASIX [Concomitant]
     Dosage: TAB
  4. PREMARIN [Concomitant]
     Dosage: TAB
  5. SYNTHROID [Concomitant]
     Dosage: TAB
  6. NEXIUM [Concomitant]
     Dosage: CAP
  7. CELEXA [Concomitant]
     Dosage: TAB
  8. ANTACID [Concomitant]
     Dosage: ULTRA ANTACID CHW

REACTIONS (2)
  - Malaise [Unknown]
  - Asthma [Unknown]
